FAERS Safety Report 10914247 (Version 1)
Quarter: 2015Q1

REPORT INFORMATION
  Report Type: Spontaneous
  Country: US (occurrence: US)
  Receive Date: 20150313
  Receipt Date: 20150313
  Transmission Date: 20150721
  Serious: No
  Sender: FDA-Public Use
  Company Number: US-ASTRAZENECA-2015SE21505

PATIENT
  Age: 34984 Day
  Sex: Male
  Weight: 83.9 kg

DRUGS (3)
  1. NEXIUM [Suspect]
     Active Substance: ESOMEPRAZOLE MAGNESIUM
     Indication: GASTROOESOPHAGEAL REFLUX DISEASE
     Route: 048
  2. MULTIVITAMIN [Concomitant]
     Active Substance: VITAMINS
     Route: 048
     Dates: start: 2009
  3. NEXIUM [Suspect]
     Active Substance: ESOMEPRAZOLE MAGNESIUM
     Indication: REGURGITATION
     Route: 048

REACTIONS (5)
  - Eating disorder [Unknown]
  - Eructation [Unknown]
  - Eructation [Unknown]
  - Off label use [Unknown]
  - Regurgitation [Unknown]

NARRATIVE: CASE EVENT DATE: 20150304
